FAERS Safety Report 4355471-6 (Version None)
Quarter: 2004Q2

REPORT INFORMATION
  Report Type: 
  Country: None (occurrence: None)
  Receive Date: 20040505
  Receipt Date: 20040426
  Transmission Date: 20050107
  Serious: Yes (Death)
  Sender: FDA-Public Use
  Company Number: 2004210218JP

PATIENT
  Age: 78 Year
  Sex: Female

DRUGS (6)
  1. AZULFIDINE EN-TABS [Suspect]
     Indication: RHEUMATOID ARTHRITIS
     Dosage: 500 MG, BID, ORAL
     Route: 048
     Dates: start: 20040304, end: 20040414
  2. PREDONINE [Concomitant]
  3. ALFAROL (ALFACALCIDOL) [Concomitant]
  4. BUFFERIN [Concomitant]
  5. SHAKUYAKU-KANZO [Concomitant]
  6. UREPEARL [Concomitant]

REACTIONS (5)
  - AGRANULOCYTOSIS [None]
  - PNEUMONIA [None]
  - RESPIRATORY FAILURE [None]
  - SEPTIC SHOCK [None]
  - SHOCK [None]
